FAERS Safety Report 16519181 (Version 3)
Quarter: 2020Q1

REPORT INFORMATION
  Report Type: Spontaneous
  Country: US (occurrence: US)
  Receive Date: 20190702
  Receipt Date: 20200305
  Transmission Date: 20200409
  Serious: Yes (Death, Hospitalization)
  Sender: FDA-Public Use
  Company Number: US-FARMAPROD-201906-0970

PATIENT
  Age: 94 Year
  Sex: Male

DRUGS (5)
  1. XIIDRA [Concomitant]
     Active Substance: LIFITEGRAST
     Dosage: OU (EACH EYE)
  2. ZIOPTAN [Concomitant]
     Active Substance: TAFLUPROST
     Dosage: EVERY BEDTIME TO EACH EYE (QHS OU)
  3. ERYTHROMYCIN. [Concomitant]
     Active Substance: ERYTHROMYCIN
     Dosage: EVERY BEDTIME TO EACH EYE (QHS OU)
  4. RESTASIS [Concomitant]
     Active Substance: CYCLOSPORINE
     Dosage: OU (EACH EYE)
  5. OXERVATE [Suspect]
     Active Substance: CENEGERMIN-BKBJ
     Indication: NEUROTROPHIC KERATOPATHY
     Route: 047
     Dates: start: 20190403

REACTIONS (2)
  - Hospitalisation [Unknown]
  - Death [Fatal]

NARRATIVE: CASE EVENT DATE: 20190624
